FAERS Safety Report 12172180 (Version 1)
Quarter: 2016Q1

REPORT INFORMATION
  Report Type: Spontaneous
  Country: CA (occurrence: CA)
  Receive Date: 20160311
  Receipt Date: 20160311
  Transmission Date: 20160526
  Serious: Yes (Hospitalization, Other)
  Sender: FDA-Public Use
  Company Number: CA-PURDUE PHARMA-CAN-2016-0006526

PATIENT
  Age: 31 Year
  Sex: Female

DRUGS (2)
  1. HYDROMORPH CONTIN [Suspect]
     Active Substance: HYDROMORPHONE
     Indication: PRODUCT USED FOR UNKNOWN INDICATION
     Dosage: UNK
     Route: 042
  2. OXYCONTIN [Suspect]
     Active Substance: OXYCODONE HYDROCHLORIDE
     Indication: PRODUCT USED FOR UNKNOWN INDICATION
     Dosage: UNK
     Route: 042

REACTIONS (10)
  - Depression [Unknown]
  - Dyspnoea [Unknown]
  - Drug dependence [Unknown]
  - Drug abuse [Unknown]
  - HIV infection [Unknown]
  - Cardiac valve disease [Unknown]
  - Pyrexia [Unknown]
  - Sepsis [Unknown]
  - General physical health deterioration [Unknown]
  - Drug withdrawal syndrome [Unknown]
